FAERS Safety Report 6005564-2 (Version None)
Quarter: 2008Q4

REPORT INFORMATION
  Report Type: 
  Country: None (occurrence: None)
  Receive Date: 20081216
  Receipt Date: 20081216
  Transmission Date: 20090506
  Serious: Yes (Life-Threatening)
  Sender: FDA-Public Use
  Company Number: None

PATIENT
  Age: 69 Year
  Sex: Female
  Weight: 65.7716 kg

DRUGS (1)
  1. IBUPROFEN TABLETS [Suspect]
     Indication: NASOPHARYNGITIS
     Dosage: 2 TABLETS ONE TIME PO
     Route: 048

REACTIONS (7)
  - APPARENT DEATH [None]
  - BLOOD PRESSURE IMMEASURABLE [None]
  - DRUG HYPERSENSITIVITY [None]
  - HYPOAESTHESIA [None]
  - PAIN [None]
  - PARALYSIS [None]
  - TREMOR [None]
